FAERS Safety Report 23656690 (Version 3)
Quarter: 2024Q3

REPORT INFORMATION
  Report Type: Report from Study
  Country: US (occurrence: US)
  Receive Date: 20240321
  Receipt Date: 20240926
  Transmission Date: 20241017
  Serious: No
  Sender: GLAXOSMITHKLINE
  Company Number: US-GLAXOSMITHKLINE-US2024AMR032648

PATIENT
  Age: 68 Year
  Sex: Female

DRUGS (1)
  1. NIRAPARIB [Suspect]
     Active Substance: NIRAPARIB
     Indication: Ovarian cancer
     Dosage: 200 MG, QD
     Route: 048
     Dates: start: 20240301

REACTIONS (5)
  - Constipation [Recovered/Resolved]
  - Abdominal pain lower [Recovered/Resolved]
  - Dizziness [Recovering/Resolving]
  - Nausea [Recovering/Resolving]
  - Impaired quality of life [Unknown]

NARRATIVE: CASE EVENT DATE: 20240309
